FAERS Safety Report 5162423-5 (Version None)
Quarter: 2006Q4

REPORT INFORMATION
  Report Type: 
  Country: None (occurrence: None)
  Receive Date: 20061128
  Receipt Date: 20061128
  Transmission Date: 20070319
  Serious: Yes (Other)
  Sender: FDA-Public Use
  Company Number: None

PATIENT
  Age: 67 Year
  Sex: Male
  Weight: 97.977 kg

DRUGS (7)
  1. HEPARIN [Suspect]
     Indication: THROMBOSIS PROPHYLAXIS
     Dosage: 5000U/0.5ML Q12
  2. BISACODYL [Concomitant]
  3. POTASSIUM CHLORIDE [Concomitant]
  4. ONDANSETRON [Concomitant]
  5. PROTAMINE SULFATE [Concomitant]
  6. MIDAZOLAM HYDROCHLORIDE [Concomitant]
  7. ASP SUPP [Concomitant]

REACTIONS (1)
  - HEPARIN-INDUCED THROMBOCYTOPENIA [None]
